FAERS Safety Report 10042701 (Version 1)
Quarter: 2014Q1

REPORT INFORMATION
  Report Type: Spontaneous
  Country: DK (occurrence: DK)
  Receive Date: 20140327
  Receipt Date: 20140327
  Transmission Date: 20141002
  Serious: Yes (Other)
  Sender: FDA-Public Use
  Company Number: PHHY2014DK036495

PATIENT
  Age: 73 Year
  Sex: Female

DRUGS (2)
  1. ESOMEPRAZOLE [Suspect]
  2. LANSOPRAZOLE [Suspect]

REACTIONS (4)
  - Subacute cutaneous lupus erythematosus [Unknown]
  - Rash [Unknown]
  - Skin lesion [Unknown]
  - Drug hypersensitivity [Unknown]
